FAERS Safety Report 15352748 (Version 2)
Quarter: 2018Q4

REPORT INFORMATION
  Report Type: Report from Study
  Country: US (occurrence: US)
  Receive Date: 20180905
  Receipt Date: 20181005
  Transmission Date: 20190204
  Serious: Yes (Other)
  Sender: FDA-Public Use
  Company Number: US-BAYER-2018-161978

PATIENT
  Age: 58 Year
  Sex: Female

DRUGS (1)
  1. STIVARGA [Suspect]
     Active Substance: REGORAFENIB
     Indication: COLON CANCER
     Dosage: 120 MG DAILY
     Route: 048
     Dates: start: 20180727

REACTIONS (8)
  - Decreased appetite [None]
  - Weight decreased [None]
  - Muscle spasms [None]
  - Burning sensation [None]
  - Dysphonia [None]
  - Pain in extremity [None]
  - Off label use [None]
  - Back pain [None]

NARRATIVE: CASE EVENT DATE: 20180727
